FAERS Safety Report 23358044 (Version 1)
Quarter: 2024Q1

REPORT INFORMATION
  Report Type: Spontaneous
  Country: US (occurrence: None)
  Receive Date: 20240101
  Receipt Date: 20240101
  Transmission Date: 20240409
  Serious: Yes (Other)
  Sender: FDA-Public Use
  Company Number: None

PATIENT
  Age: 47 Year
  Sex: Female
  Weight: 63 kg

DRUGS (1)
  1. BREO ELLIPTA [Suspect]
     Active Substance: FLUTICASONE FUROATE\VILANTEROL TRIFENATATE
     Indication: Asthma
     Dosage: FREQUENCY : DAILY;?
     Route: 055
     Dates: start: 20230901, end: 20240101

REACTIONS (2)
  - Bronchitis [None]
  - Adverse drug reaction [None]

NARRATIVE: CASE EVENT DATE: 20231231
